FAERS Safety Report 22340368 (Version 1)
Quarter: 2023Q2

REPORT INFORMATION
  Report Type: Spontaneous
  Country: AU (occurrence: AU)
  Receive Date: 20230518
  Receipt Date: 20230518
  Transmission Date: 20230722
  Serious: Yes (Hospitalization, Other)
  Sender: FDA-Public Use
  Company Number: AU-TEVA-2023-AU-2889148

PATIENT
  Age: 35 Year
  Sex: Male
  Weight: 104 kg

DRUGS (3)
  1. ARIPIPRAZOLE [Interacting]
     Active Substance: ARIPIPRAZOLE
     Indication: Product used for unknown indication
     Route: 065
     Dates: start: 2018
  2. ACETAMINOPHEN [Interacting]
     Active Substance: ACETAMINOPHEN
     Indication: Product used for unknown indication
     Dosage: 2 GRAM
     Route: 065
  3. DIAZEPAM [Interacting]
     Active Substance: DIAZEPAM
     Indication: Product used for unknown indication
     Dosage: 30 MG
     Route: 065

REACTIONS (23)
  - Hospitalisation [Unknown]
  - Hallucination, tactile [Unknown]
  - Hallucination, visual [Unknown]
  - Hallucination, auditory [Unknown]
  - Suicidal ideation [Unknown]
  - Intentional self-injury [Unknown]
  - Paranoia [Unknown]
  - Alcohol interaction [Unknown]
  - Aggression [Unknown]
  - Psychotic disorder [Unknown]
  - Hypersomnia [Unknown]
  - Condition aggravated [Unknown]
  - Persecutory delusion [Unknown]
  - Blood prolactin increased [Unknown]
  - Hypotension [Unknown]
  - Dizziness [Unknown]
  - Insomnia [Unknown]
  - Homicidal ideation [Unknown]
  - Self-injurious ideation [Unknown]
  - Loss of personal independence in daily activities [Unknown]
  - Treatment noncompliance [Unknown]
  - Drug ineffective [Unknown]
  - Overdose [Unknown]

NARRATIVE: CASE EVENT DATE: 20190101
